FAERS Safety Report 4709055-8 (Version None)
Quarter: 2005Q3

REPORT INFORMATION
  Report Type: 
  Country: None (occurrence: None)
  Receive Date: 20050707
  Receipt Date: 20050623
  Transmission Date: 20060218
  Serious: Yes (Disabling, Other)
  Sender: FDA-Public Use
  Company Number: 2005US-00564

PATIENT
  Age: 16 Year
  Sex: Female

DRUGS (1)
  1. ISOTRETINOIN (ISOTRETINOIN) CAPSULE, 40MG [Suspect]
     Indication: ACNE CYSTIC
     Dosage: 40 MG, BID, ORAL
     Route: 048
     Dates: start: 20041124, end: 20050512

REACTIONS (7)
  - ALOPECIA [None]
  - AMENORRHOEA [None]
  - ARTHRALGIA [None]
  - DECREASED INTEREST [None]
  - INSOMNIA [None]
  - MAJOR DEPRESSION [None]
  - SUICIDAL IDEATION [None]
